FAERS Safety Report 23497654 (Version 2)
Quarter: 2024Q1

REPORT INFORMATION
  Report Type: Report from Study
  Country: TW (occurrence: None)
  Receive Date: 20240208
  Receipt Date: 20240223
  Transmission Date: 20240410
  Serious: Yes (Other)
  Sender: FDA-Public Use
  Company Number: 2024A027706

PATIENT
  Age: 23677 Day
  Sex: Female

DRUGS (3)
  1. IMFINZI [Suspect]
     Active Substance: DURVALUMAB
     Indication: Bile duct cancer
     Route: 041
     Dates: start: 20230816
  2. MEGESTROL [Concomitant]
     Active Substance: MEGESTROL
  3. SLEEP-AID DRUGS [Concomitant]

REACTIONS (5)
  - Haemoglobin decreased [Unknown]
  - Metastases to bone [Unknown]
  - Myelosuppression [Unknown]
  - White blood cell count decreased [Unknown]
  - Decreased appetite [Unknown]

NARRATIVE: CASE EVENT DATE: 20231110
